FAERS Safety Report 8084735-8 (Version None)
Quarter: 2012Q1

REPORT INFORMATION
  Report Type: 
  Country: None (occurrence: None)
  Receive Date: 20120128
  Receipt Date: 20110314
  Transmission Date: 20120608
  Serious: No
  Sender: FDA-Public Use
  Company Number: US-ABBOTT-11P-163-0712362-00

PATIENT
  Sex: Female
  Weight: 83.536 kg

DRUGS (17)
  1. MULTI-VITAMIN [Concomitant]
     Indication: VITAMIN SUPPLEMENTATION
  2. VITAMIN E [Concomitant]
     Indication: VITAMIN SUPPLEMENTATION
  3. ESTER-C [Concomitant]
     Indication: VITAMIN SUPPLEMENTATION
  4. ACETAMINOPHEN [Concomitant]
     Indication: PAIN
  5. SPIRIVA [Concomitant]
     Indication: CHRONIC OBSTRUCTIVE PULMONARY DISEASE
  6. OXYBUTYNIN CHLORIDE [Concomitant]
     Indication: GASTROOESOPHAGEAL REFLUX DISEASE
  7. HUMIRA [Suspect]
     Indication: RHEUMATOID ARTHRITIS
     Dates: start: 20110124
  8. METHOTREXATE [Concomitant]
     Indication: RHEUMATOID ARTHRITIS
  9. NEOMYCIN [Concomitant]
     Indication: EAR INFECTION
     Dates: start: 20110201
  10. FOLIC ACID [Concomitant]
     Indication: VITAMIN SUPPLEMENTATION
  11. VITAMIN B-12 [Concomitant]
     Indication: VITAMIN SUPPLEMENTATION
  12. CALCIUM [Concomitant]
     Indication: MINERAL SUPPLEMENTATION
  13. VITAMIN D [Concomitant]
     Indication: VITAMIN SUPPLEMENTATION
  14. FISH OIL [Concomitant]
     Indication: MINERAL SUPPLEMENTATION
  15. CALCITONIN SALMON [Concomitant]
     Indication: BLOOD CALCIUM
     Dosage: NASAL SPRAY
  16. PREDNISONE TAB [Concomitant]
     Indication: RHEUMATOID ARTHRITIS
  17. PANTOPRAZOLE SODIUM [Concomitant]
     Indication: PRODUCT USED FOR UNKNOWN INDICATION

REACTIONS (9)
  - ARTHRALGIA [None]
  - UPPER RESPIRATORY TRACT INFECTION [None]
  - DYSPNOEA [None]
  - CHEST DISCOMFORT [None]
  - EAR INFECTION [None]
  - BRONCHITIS [None]
  - PAIN IN EXTREMITY [None]
  - INCREASED BRONCHIAL SECRETION [None]
  - EAR PAIN [None]
